FAERS Safety Report 5014510-X (Version None)
Quarter: 2006Q2

REPORT INFORMATION
  Report Type: 
  Country: None (occurrence: None)
  Receive Date: 20060531
  Receipt Date: 20060517
  Transmission Date: 20061013
  Serious: Yes (Hospitalization)
  Sender: FDA-Public Use
  Company Number: DE-AMGEN-UK180120

PATIENT
  Sex: Male

DRUGS (3)
  1. NEUPOGEN [Suspect]
     Indication: PERIPHERAL BLOOD STEM CELL APHERESIS
     Route: 058
     Dates: start: 20060302, end: 20060306
  2. HYDROCHLOROTHIAZIDE [Concomitant]
     Route: 065
  3. BEZAFIBRATE [Concomitant]
     Route: 065

REACTIONS (4)
  - AMBLYOPIA STRABISMIC [None]
  - RETINAL PIGMENT EPITHELIOPATHY [None]
  - RETINITIS [None]
  - VISUAL ACUITY REDUCED [None]
